FAERS Safety Report 7003830-5 (Version None)
Quarter: 2010Q3

REPORT INFORMATION
  Report Type: 
  Country: None (occurrence: None)
  Receive Date: 20100920
  Receipt Date: 20091207
  Transmission Date: 20110219
  Serious: No
  Sender: FDA-Public Use
  Company Number: US-WYE-H12534909

PATIENT
  Sex: Female

DRUGS (1)
  1. PRISTIQ [Suspect]
     Indication: DEPRESSION
     Dosage: TITRATED UP TO 100 MG DAILY
     Route: 048
     Dates: start: 20091001, end: 20091203

REACTIONS (9)
  - CONFUSIONAL STATE [None]
  - DIZZINESS [None]
  - DRUG WITHDRAWAL SYNDROME [None]
  - FEELING COLD [None]
  - FEELING HOT [None]
  - HEADACHE [None]
  - MOOD SWINGS [None]
  - NAUSEA [None]
  - PALPITATIONS [None]
